FAERS Safety Report 7214888-2 (Version None)
Quarter: 2011Q1

REPORT INFORMATION
  Report Type: 
  Country: None (occurrence: None)
  Receive Date: 20110107
  Receipt Date: 20100629
  Transmission Date: 20110831
  Serious: No
  Sender: FDA-Public Use
  Company Number: A0856473A

PATIENT
  Age: 80 Year
  Sex: Female

DRUGS (4)
  1. LOVAZA [Suspect]
     Dosage: 2CAP PER DAY
     Route: 048
     Dates: start: 20091201, end: 20100317
  2. FOSAMAX [Concomitant]
  3. CALCIUM [Concomitant]
  4. ASPIRIN [Concomitant]
     Dosage: 81MG PER DAY
     Route: 048

REACTIONS (4)
  - ILL-DEFINED DISORDER [None]
  - URINE ODOUR ABNORMAL [None]
  - CHROMATURIA [None]
  - ABNORMAL FAECES [None]
